FAERS Safety Report 19982971 (Version 1)
Quarter: 2021Q4

REPORT INFORMATION
  Report Type: Spontaneous
  Country: US (occurrence: US)
  Receive Date: 20211021
  Receipt Date: 20211021
  Transmission Date: 20220303
  Serious: No
  Sender: FDA-Public Use
  Company Number: None

PATIENT
  Age: 66 Year
  Sex: Female
  Weight: 64.35 kg

DRUGS (7)
  1. AFINITOR [Suspect]
     Active Substance: EVEROLIMUS
     Indication: Breast cancer
     Route: 048
     Dates: start: 20200116, end: 20211021
  2. LETROZOLE [Concomitant]
     Active Substance: LETROZOLE
  3. XGEVA [Concomitant]
     Active Substance: DENOSUMAB
  4. Vitamin D 2000IU [Concomitant]
  5. Calcium-Vitamin D 500mg-125IU [Concomitant]
  6. EXEMESTANE [Concomitant]
     Active Substance: EXEMESTANE
  7. Theophylline ER 300mg [Concomitant]

REACTIONS (1)
  - Disease progression [None]

NARRATIVE: CASE EVENT DATE: 20211021
